FAERS Safety Report 6125650-6 (Version None)
Quarter: 2009Q1

REPORT INFORMATION
  Report Type: 
  Country: None (occurrence: None)
  Receive Date: 20090320
  Receipt Date: 20090311
  Transmission Date: 20090719
  Serious: Yes (Death, Other)
  Sender: FDA-Public Use
  Company Number: DE-ELI_LILLY_AND_COMPANY-DE200903002845

PATIENT
  Age: 51 Year
  Sex: Male
  Weight: 44.7 kg

DRUGS (8)
  1. ZYPREXA [Suspect]
     Indication: SCHIZOPHRENIA
     Dosage: 10 MG, DAILY (1/D)
     Route: 048
     Dates: start: 20080819, end: 20080820
  2. ZYPREXA [Suspect]
     Dosage: 15 MG, DAILY (1/D)
     Route: 048
     Dates: start: 20080821
  3. NEUROCIL [Concomitant]
     Dosage: 100 MG, DAILY (1/D)
     Route: 048
     Dates: start: 20080818, end: 20080821
  4. NEUROCIL [Concomitant]
     Dosage: 125 MG, DAILY (1/D)
     Route: 048
     Dates: start: 20080822
  5. TAVOR [Concomitant]
     Dosage: 2 MG, DAILY (1/D)
     Route: 048
     Dates: start: 20080820
  6. THEOPHYLLINE [Concomitant]
     Dosage: 400 MG, DAILY (1/D)
     Route: 048
     Dates: start: 20080820
  7. FORADIL [Concomitant]
     Dosage: 2 D/F, UNK
     Route: 048
     Dates: start: 20080820
  8. PREDNISOLONE [Concomitant]
     Dosage: 15 MG, DAILY (1/D)
     Route: 048
     Dates: start: 20080820

REACTIONS (5)
  - ANXIETY [None]
  - DEATH [None]
  - DYSPHAGIA [None]
  - FAECAL VOMITING [None]
  - ILEUS PARALYTIC [None]
